FAERS Safety Report 9401589 (Version 2)
Quarter: 2013Q3

REPORT INFORMATION
  Report Type: Report from Study
  Country: IT (occurrence: IT)
  Receive Date: 20130716
  Receipt Date: 20130828
  Transmission Date: 20140515
  Serious: Yes (Hospitalization)
  Sender: FDA-Public Use
  Company Number: IT-BRISTOL-MYERS SQUIBB COMPANY-19089242

PATIENT
  Age: 70 Year
  Sex: Male

DRUGS (14)
  1. PACLITAXEL [Suspect]
     Indication: NON-SMALL CELL LUNG CANCER
     Dosage: DATE OF MOSE RECENT DOSE(244)MG:20-MAR-2013
     Route: 042
     Dates: start: 20130115, end: 20130320
  2. CARBOPLATIN [Suspect]
     Indication: NON-SMALL CELL LUNG CANCER
     Dosage: DATE OF MOST RECENT DOSE(410MG):20-MAR-2013.
     Route: 042
     Dates: start: 20130115, end: 20130320
  3. BEVACIZUMAB [Suspect]
     Indication: NON-SMALL CELL LUNG CANCER
     Dosage: DATE OF MOST RECENT DOSE (855MG):23-APR-2013.
     Route: 042
     Dates: start: 20130115, end: 20130423
  4. LOBIVON [Concomitant]
     Indication: HYPERTENSION
     Route: 048
     Dates: start: 2002
  5. CLEXANE [Concomitant]
     Indication: THROMBOPHLEBITIS SUPERFICIAL
     Route: 058
     Dates: start: 20121211
  6. TACHIPIRINA [Concomitant]
     Indication: CANCER PAIN
     Route: 048
     Dates: start: 20121229
  7. VALSARTAN [Concomitant]
     Indication: HYPERTENSION
     Route: 048
     Dates: start: 20120226
  8. UGUROL [Concomitant]
     Indication: EPISTAXIS
     Route: 048
     Dates: start: 20130225
  9. PLASIL [Concomitant]
     Indication: NAUSEA
     Route: 048
     Dates: start: 20130321
  10. RANIDIL [Concomitant]
     Indication: PROPHYLAXIS AGAINST GASTROINTESTINAL ULCER
     Route: 048
     Dates: start: 20130321
  11. MISTLETOE [Concomitant]
     Route: 058
     Dates: start: 20130226
  12. PANTOPRAZOLE [Concomitant]
     Indication: PROPHYLAXIS AGAINST GASTROINTESTINAL ULCER
     Route: 048
     Dates: start: 20130619
  13. CLOPIDOGREL BISULFATE [Concomitant]
     Indication: THROMBOSIS
     Route: 048
     Dates: start: 20130619
  14. SOLDESAM [Concomitant]
     Indication: SUPPORTIVE CARE
     Dosage: 19JUN13-26JUN13?26JUN13
     Route: 048
     Dates: start: 20130619

REACTIONS (1)
  - Cerebral ischaemia [Recovered/Resolved]
